FAERS Safety Report 15525561 (Version 2)
Quarter: 2018Q4

REPORT INFORMATION
  Report Type: Spontaneous
  Country: CA (occurrence: CA)
  Receive Date: 20181018
  Receipt Date: 20181026
  Transmission Date: 20190205
  Serious: No
  Sender: FDA-Public Use
  Company Number: CA-SYNEX-T201804553

PATIENT

DRUGS (2)
  1. INOMAX [Suspect]
     Active Substance: NITRIC OXIDE
     Indication: BRONCHOPULMONARY DYSPLASIA
     Dosage: UNKNOWN
     Route: 065
  2. INOMAX [Suspect]
     Active Substance: NITRIC OXIDE
     Indication: PERSISTENT FOETAL CIRCULATION

REACTIONS (2)
  - Product use issue [Unknown]
  - Therapy non-responder [Not Recovered/Not Resolved]
